FAERS Safety Report 5493321-5 (Version None)
Quarter: 2007Q4

REPORT INFORMATION
  Report Type: 
  Country: None (occurrence: None)
  Receive Date: 20071022
  Receipt Date: 20071022
  Transmission Date: 20080405
  Serious: Yes (Other)
  Sender: FDA-Public Use
  Company Number: None

PATIENT
  Age: 53 Year
  Sex: Female

DRUGS (11)
  1. TRIMETHOPRIM [Suspect]
     Dates: start: 20070126, end: 20070131
  2. AZITHROMYCIN [Suspect]
     Dates: start: 20070105, end: 20070110
  3. SYNTHROID [Concomitant]
  4. PROTONIX [Concomitant]
  5. CRESTOR [Concomitant]
  6. FORTEO [Concomitant]
  7. BUMETANIDE [Concomitant]
  8. TRIMETHOBENZAMIDE [Concomitant]
  9. PROPOXYPHENE-N [Concomitant]
  10. COSOPT EYE DROPS [Concomitant]
  11. LUMIGAN EYE DROPS [Concomitant]

REACTIONS (13)
  - ABDOMINAL PAIN [None]
  - ASTHENIA [None]
  - AUTOIMMUNE DISORDER [None]
  - AUTOIMMUNE HEPATITIS [None]
  - BLOOD ALKALINE PHOSPHATASE INCREASED [None]
  - EPSTEIN-BARR VIRUS ANTIBODY POSITIVE [None]
  - EPSTEIN-BARR VIRUS ANTIGEN POSITIVE [None]
  - HEPATITIS ACUTE [None]
  - LIVER INJURY [None]
  - NAUSEA [None]
  - PRURITUS [None]
  - RASH [None]
  - URINARY TRACT INFECTION [None]
